FAERS Safety Report 7284541-8 (Version None)
Quarter: 2011Q1

REPORT INFORMATION
  Report Type: 
  Country: None (occurrence: None)
  Receive Date: 20110209
  Receipt Date: 20110204
  Transmission Date: 20110831
  Serious: Yes (Other)
  Sender: FDA-Public Use
  Company Number: US-AMGEN-USASP2011006651

PATIENT
  Age: 50 Year
  Sex: Male

DRUGS (2)
  1. NPLATE [Suspect]
     Indication: IDIOPATHIC THROMBOCYTOPENIC PURPURA
     Dosage: UNK
     Dates: start: 20100106, end: 20110113
  2. NPLATE [Suspect]
     Dates: start: 20100106, end: 20110113

REACTIONS (1)
  - THROMBOCYTOPENIA [None]
